FAERS Safety Report 9455922 (Version 2)
Quarter: 2013Q3

REPORT INFORMATION
  Report Type: Spontaneous
  Country: US (occurrence: US)
  Receive Date: 20130813
  Receipt Date: 20130830
  Transmission Date: 20140515
  Serious: Yes (Hospitalization, Other)
  Sender: FDA-Public Use
  Company Number: US-BAYER-2013-097575

PATIENT
  Sex: Male
  Weight: 74.83 kg

DRUGS (2)
  1. BAYER GENUINE ASPIRIN ORIGINAL STRENGTH [Suspect]
     Dosage: UNK UNK, PRN
     Route: 048
  2. EQUATE ASPIRIN [Concomitant]

REACTIONS (4)
  - Gastric haemorrhage [Recovered/Resolved]
  - Melaena [Recovered/Resolved]
  - Haematochezia [Recovered/Resolved]
  - Rectal haemorrhage [Recovered/Resolved]
